FAERS Safety Report 25046264 (Version 1)
Quarter: 2025Q1

REPORT INFORMATION
  Report Type: Spontaneous
  Country: US (occurrence: US)
  Receive Date: 20250306
  Receipt Date: 20250306
  Transmission Date: 20250409
  Serious: Yes (Other)
  Sender: TARO
  Company Number: US-TARO PHARMACEUTICALS USA INC.-2025TAR00843

PATIENT

DRUGS (2)
  1. ACETAZOLAMIDE [Suspect]
     Active Substance: ACETAZOLAMIDE
     Indication: Central serous chorioretinopathy
     Route: 065
  2. ACETAZOLAMIDE [Suspect]
     Active Substance: ACETAZOLAMIDE
     Route: 065

REACTIONS (3)
  - Therapy cessation [Unknown]
  - Drug ineffective [Unknown]
  - Drug intolerance [Unknown]
